FAERS Safety Report 4951834-6 (Version None)
Quarter: 2006Q1

REPORT INFORMATION
  Report Type: 
  Country: None (occurrence: None)
  Receive Date: 20060323
  Receipt Date: 20051123
  Transmission Date: 20060701
  Serious: Yes (Hospitalization, Other)
  Sender: FDA-Public Use
  Company Number: US-MERCK-0511USA04077

PATIENT
  Age: 68 Year
  Sex: Female
  Weight: 69 kg

DRUGS (20)
  1. VIOXX [Suspect]
     Indication: ARTHRITIS
     Route: 048
     Dates: start: 20010505, end: 20040101
  2. ACTONEL [Concomitant]
     Route: 065
  3. ALLEGRA [Concomitant]
     Route: 065
  4. ALTACE [Concomitant]
     Route: 065
  5. ASPIRIN [Concomitant]
     Route: 065
  6. [THERAPY UNSPECIFIED] [Concomitant]
     Route: 065
  7. CEPHALEXIN [Concomitant]
     Route: 065
  8. ENALAPRIL MALEATE [Concomitant]
     Route: 065
  9. EPIPEN [Concomitant]
     Route: 065
  10. GUAIFENESIN AND PSEUDOEPHEDRINE HYDROCHLORIDE [Concomitant]
     Route: 065
  11. GUAIFENESIN [Concomitant]
     Route: 065
  12. NASACORT [Concomitant]
     Route: 065
  13. PRAVACHOL [Concomitant]
     Route: 065
  14. CODEINE PHOSPHATE AND PROMETHAZINE HYDROCHLORIDE [Concomitant]
     Route: 065
  15. SYNTHROID [Concomitant]
     Route: 065
  16. SULFAMETHOXAZOLE AND TRIMETHOPRIM [Concomitant]
     Route: 065
  17. TRIMOX [Concomitant]
     Route: 065
  18. ACETAMINOPHEN AND HYDROCODONE BITARTRATE [Concomitant]
     Route: 065
  19. ACETAMINOPHEN AND PROPOXYPHENE NAPSYLATE [Concomitant]
     Route: 065
  20. CEFACLOR [Concomitant]
     Route: 065

REACTIONS (6)
  - CEREBROVASCULAR ACCIDENT [None]
  - DIZZINESS [None]
  - GALLBLADDER DISORDER [None]
  - INJURY [None]
  - OSTEOPOROSIS [None]
  - TRANSIENT ISCHAEMIC ATTACK [None]
